FAERS Safety Report 9003587 (Version 1)
Quarter: 2013Q1

REPORT INFORMATION
  Report Type: Spontaneous
  Country: US (occurrence: US)
  Receive Date: 20130108
  Receipt Date: 20130108
  Transmission Date: 20140127
  Serious: No
  Sender: FDA-Public Use
  Company Number: US-009507513-1301USA001609

PATIENT
  Age: 30 Year
  Sex: Female

DRUGS (2)
  1. CLARITIN-D [Suspect]
     Indication: SINUS CONGESTION
     Dosage: UNK, UNKNOWN
     Route: 048
  2. CLARITIN-D [Suspect]
     Indication: NASAL OEDEMA

REACTIONS (1)
  - Drug ineffective [Unknown]
